FAERS Safety Report 10465266 (Version 1)
Quarter: 2014Q3

REPORT INFORMATION
  Report Type: Spontaneous
  Country: US (occurrence: US)
  Receive Date: 20140919
  Receipt Date: 20140919
  Transmission Date: 20150326
  Serious: No
  Sender: FDA-Public Use
  Company Number: US-PFIZER INC-2014260261

PATIENT
  Age: 56 Year
  Sex: Female
  Weight: 61.68 kg

DRUGS (5)
  1. NICOTROL [Suspect]
     Active Substance: NICOTINE
     Dosage: 10 MG, (EVERY 15 MINUTES)
     Route: 045
     Dates: start: 201409
  2. NICOTROL [Suspect]
     Active Substance: NICOTINE
     Indication: SMOKING CESSATION THERAPY
     Dosage: 10 MG, (EVERY 15 MINUTES)
     Route: 045
     Dates: start: 201403, end: 2014
  3. XANAX [Concomitant]
     Active Substance: ALPRAZOLAM
     Indication: SMOKING CESSATION THERAPY
     Dosage: 0.5 MG, UNK
  4. XANAX [Concomitant]
     Active Substance: ALPRAZOLAM
     Indication: ANXIETY
  5. TRAZODONE [Concomitant]
     Active Substance: TRAZODONE HYDROCHLORIDE
     Dosage: 100 MG, 1X/DAY

REACTIONS (4)
  - Sneezing [Unknown]
  - Product container issue [Unknown]
  - Nasal discomfort [Unknown]
  - Drug ineffective [Unknown]

NARRATIVE: CASE EVENT DATE: 201403
